FAERS Safety Report 16359227 (Version 1)
Quarter: 2019Q2

REPORT INFORMATION
  Report Type: Spontaneous
  Country: US (occurrence: US)
  Receive Date: 20190527
  Receipt Date: 20190527
  Transmission Date: 20190711
  Serious: Yes (Other)
  Sender: FDA-Public Use
  Company Number: US-SA-2019SA140011

PATIENT
  Age: 50 Year
  Sex: Female

DRUGS (2)
  1. KEFLEX [Concomitant]
     Active Substance: CEPHALEXIN
     Indication: ABSCESS
     Dosage: UNKNOWN
     Route: 065
  2. SOLIQUA 100/33 [Suspect]
     Active Substance: INSULIN GLARGINE\LIXISENATIDE
     Dosage: 15 U, UNK
     Route: 065
     Dates: start: 20190509

REACTIONS (2)
  - Diabetes mellitus inadequate control [Unknown]
  - Urticaria [Unknown]

NARRATIVE: CASE EVENT DATE: 20190518
